FAERS Safety Report 8348653-X (Version None)
Quarter: 2012Q2

REPORT INFORMATION
  Report Type: 
  Country: None (occurrence: None)
  Receive Date: 20120510
  Receipt Date: 20120427
  Transmission Date: 20120825
  Serious: Yes (Hospitalization, Other)
  Sender: FDA-Public Use
  Company Number: US-ELI_LILLY_AND_COMPANY-US201004000071

PATIENT
  Sex: Female

DRUGS (4)
  1. FORTEO [Suspect]
     Dosage: 20 UG, QD
     Route: 065
     Dates: end: 20101130
  2. FORTEO [Suspect]
     Indication: OSTEOPOROSIS
     Dosage: 20 UG, DAILY (1/D)
     Route: 065
     Dates: start: 20100301
  3. FORTEO [Suspect]
     Dosage: 20 UG, QD
     Route: 065
  4. FORTEO [Suspect]
     Dosage: 20 UG, QD
     Route: 065

REACTIONS (11)
  - HIP ARTHROPLASTY [None]
  - HEART RATE INCREASED [None]
  - MALAISE [None]
  - MUSCULAR WEAKNESS [None]
  - DIZZINESS [None]
  - ASTHENIA [None]
  - INCISION SITE COMPLICATION [None]
  - POST PROCEDURAL INFECTION [None]
  - ANAEMIA [None]
  - DIARRHOEA [None]
  - PNEUMONIA [None]
